FAERS Safety Report 6277767-3 (Version None)
Quarter: 2009Q3

REPORT INFORMATION
  Report Type: 
  Country: None (occurrence: None)
  Receive Date: 20090722
  Receipt Date: 20090713
  Transmission Date: 20100115
  Serious: Yes (Death)
  Sender: FDA-Public Use
  Company Number: B0584901A

PATIENT
  Age: 67 Year
  Sex: Female

DRUGS (7)
  1. TYVERB [Suspect]
     Dosage: 1250MG PER DAY
     Route: 065
     Dates: start: 20090506
  2. LIDOCAINE [Concomitant]
     Dosage: 2000MGM2 PER DAY
  3. FEMARA [Concomitant]
     Dosage: 1TAB PER DAY
  4. THYREX [Concomitant]
  5. FORTECORTIN [Concomitant]
     Dosage: 4MG PER DAY
  6. PAMIDRONATE DISODIUM [Concomitant]
  7. CAPECITABINE [Concomitant]

REACTIONS (4)
  - CEREBRAL HAEMORRHAGE [None]
  - DIARRHOEA [None]
  - PULMONARY HAEMORRHAGE [None]
  - SKIN REACTION [None]
